FAERS Safety Report 24948972 (Version 1)
Quarter: 2025Q1

REPORT INFORMATION
  Report Type: Spontaneous
  Country: US (occurrence: None)
  Receive Date: 20250208
  Receipt Date: 20250208
  Transmission Date: 20250409
  Serious: Yes (Life-Threatening, Other)
  Sender: FDA-CTU
  Company Number: None

PATIENT
  Age: 69 Year
  Sex: Male
  Weight: 65.25 kg

DRUGS (2)
  1. TRICOR [Suspect]
     Active Substance: FENOFIBRATE
  2. SYNTHROID [Concomitant]
     Active Substance: LEVOTHYROXINE SODIUM

REACTIONS (5)
  - Eczema [None]
  - Inflammation [None]
  - Heart rate irregular [None]
  - Ventricular extrasystoles [None]
  - Prostatic disorder [None]

NARRATIVE: CASE EVENT DATE: 20210115
